FAERS Safety Report 5817756-3 (Version None)
Quarter: 2008Q3

REPORT INFORMATION
  Report Type: 
  Country: None (occurrence: None)
  Receive Date: 20080722
  Receipt Date: 20071120
  Transmission Date: 20090109
  Serious: No
  Sender: FDA-Public Use
  Company Number: US-TYCO HEALTHCARE/MALLINCKRODT-T200701441

PATIENT

DRUGS (1)
  1. TECHNESCAN MAG3 [Suspect]
     Indication: RENAL SCAN
     Dosage: 9.92 MCI, SINGLE
     Route: 042
     Dates: start: 20071119, end: 20071119

REACTIONS (1)
  - DRUG INEFFECTIVE [None]
